FAERS Safety Report 26122012 (Version 1)
Quarter: 2025Q4

REPORT INFORMATION
  Report Type: Spontaneous
  Country: RS (occurrence: RS)
  Receive Date: 20251204
  Receipt Date: 20251204
  Transmission Date: 20260118
  Serious: Yes (Death, Life-Threatening, Other)
  Sender: INCYTE
  Company Number: RS-002147023-NVSC2025RS185274

PATIENT
  Age: 56 Year

DRUGS (2)
  1. RUXOLITINIB [Suspect]
     Active Substance: RUXOLITINIB
     Indication: Primary myelofibrosis
     Dosage: 20 MG BID (2X1)
     Route: 065
  2. HYDROXYUREA [Concomitant]
     Active Substance: HYDROXYUREA
     Indication: Product used for unknown indication
     Dosage: UNK
     Route: 065

REACTIONS (8)
  - Cardiac death [Fatal]
  - Splenomegaly [Unknown]
  - Gastric ulcer [Unknown]
  - Hepatomegaly [Unknown]
  - Haemoglobin decreased [Unknown]
  - Abdominal pain [Unknown]
  - Thrombocytosis [Unknown]
  - Extramedullary haemopoiesis [Unknown]
